FAERS Safety Report 9320971 (Version 2)
Quarter: 2013Q2

REPORT INFORMATION
  Report Type: Spontaneous
  Country: IT (occurrence: None)
  Receive Date: 20130528
  Receipt Date: 20130528
  Transmission Date: 20140414
  Serious: Yes (Other)
  Sender: FDA-Public Use
  Company Number: 2013AP000742

PATIENT
  Age: 36 Year
  Sex: Female

DRUGS (4)
  1. FERRIPROX [Suspect]
     Indication: IRON OVERLOAD
     Route: 048
     Dates: start: 20110101, end: 20121213
  2. FERRIPROX [Suspect]
     Indication: THALASSAEMIA
     Route: 048
     Dates: start: 20110101, end: 20121213
  3. FOLIC ACID [Concomitant]
  4. ASA [Concomitant]

REACTIONS (3)
  - Granulocytopenia [None]
  - Viral infection [None]
  - Influenza like illness [None]
